FAERS Safety Report 10189318 (Version 1)
Quarter: 2014Q2

REPORT INFORMATION
  Report Type: Spontaneous
  Country: US (occurrence: US)
  Receive Date: 20140522
  Receipt Date: 20140522
  Transmission Date: 20141212
  Serious: No
  Sender: FDA-Public Use
  Company Number: US-BAXTER-2013BAX028067

PATIENT
  Sex: Female
  Weight: 95.45 kg

DRUGS (6)
  1. GAMMAGARD LIQUID [Suspect]
     Indication: PRIMARY IMMUNODEFICIENCY SYNDROME
     Route: 042
     Dates: start: 2012, end: 2012
  2. GAMMAGARD LIQUID [Suspect]
     Dates: start: 2009
  3. SYNTHROID [Concomitant]
     Indication: HYPOTHYROIDISM
     Route: 048
  4. SOLU-CORTEF [Concomitant]
     Indication: PREMEDICATION
     Route: 042
     Dates: start: 2005, end: 2007
  5. BENADRYL [Concomitant]
     Indication: PREMEDICATION
     Dosage: ADMINISTERED ON DATE OF INFUSION
     Route: 048
  6. TYLENOL EXTRA STRENGTH [Concomitant]
     Indication: PREMEDICATION
     Dosage: 2 TABLETS ON DATE OF INFUSION
     Route: 048

REACTIONS (8)
  - Headache [Recovered/Resolved]
  - Nausea [Recovered/Resolved]
  - Fatigue [Recovered/Resolved]
  - Asthenia [Unknown]
  - Tremor [Unknown]
  - Hyperhidrosis [Unknown]
  - Pain in extremity [Recovered/Resolved]
  - Vein discolouration [Recovered/Resolved]
